FAERS Safety Report 4269759-0 (Version None)
Quarter: 2004Q1

REPORT INFORMATION
  Report Type: 
  Country: None (occurrence: None)
  Receive Date: 20040107
  Receipt Date: 20031222
  Transmission Date: 20041129
  Serious: Yes (Death)
  Sender: FDA-Public Use
  Company Number: 234505

PATIENT
  Age: 15 Year
  Sex: Male
  Weight: 65 kg

DRUGS (3)
  1. NOVOSEVEN [Suspect]
     Indication: THROMBASTHENIA
     Dosage: SEE IMAGE
     Route: 042
     Dates: start: 20031201, end: 20031201
  2. NOVOSEVEN [Suspect]
     Indication: THROMBASTHENIA
     Dosage: SEE IMAGE
     Route: 042
     Dates: start: 20031202, end: 20031205
  3. NOVOSEVEN [Suspect]
     Indication: THROMBASTHENIA
     Dosage: SEE IMAGE
     Route: 042
     Dates: start: 20031211, end: 20031217

REACTIONS (11)
  - APPENDICITIS PERFORATED [None]
  - BLOOD CREATININE INCREASED [None]
  - BLOOD PRESSURE DECREASED [None]
  - BLOOD UREA INCREASED [None]
  - COMPUTERISED TOMOGRAM ABNORMAL [None]
  - GASTROINTESTINAL NECROSIS [None]
  - HYPOXIA [None]
  - INTESTINAL ISCHAEMIA [None]
  - ISCHAEMIA [None]
  - RENAL VESSEL DISORDER [None]
  - SEPTIC SHOCK [None]
